FAERS Safety Report 11654824 (Version 4)
Quarter: 2016Q1

REPORT INFORMATION
  Report Type: Report from Study
  Country: IT (occurrence: IT)
  Receive Date: 20151023
  Receipt Date: 20160314
  Transmission Date: 20160525
  Serious: Yes (Other)
  Sender: FDA-Public Use
  Company Number: PHHY2015IT135194

PATIENT
  Age: 51 Year
  Sex: Male

DRUGS (1)
  1. TASIGNA [Suspect]
     Active Substance: NILOTINIB
     Indication: CHRONIC MYELOID LEUKAEMIA
     Dosage: UNK
     Route: 048

REACTIONS (5)
  - Primary hypothyroidism [Unknown]
  - Anxiety disorder [Unknown]
  - Autoimmune thyroiditis [Unknown]
  - Depression [Unknown]
  - Onychomycosis [Unknown]

NARRATIVE: CASE EVENT DATE: 20140430
